FAERS Safety Report 23991667 (Version 1)
Quarter: 2024Q2

REPORT INFORMATION
  Report Type: Other
  Country: TN (occurrence: TN)
  Receive Date: 20240619
  Receipt Date: 20240619
  Transmission Date: 20240716
  Serious: Yes (Life-Threatening)
  Sender: FDA-Public Use
  Company Number: TN-B.Braun Medical Inc.-2158297

PATIENT
  Age: 14 Year
  Sex: Female

DRUGS (3)
  1. SODIUM CHLORIDE [Suspect]
     Active Substance: SODIUM CHLORIDE
     Indication: Hypotension
  2. SODIUM BICARBONATE [Suspect]
     Active Substance: SODIUM BICARBONATE
  3. Norepinephrine (vasopressor and inotropic support) [Concomitant]

REACTIONS (1)
  - Drug ineffective [Unknown]
